FAERS Safety Report 24241894 (Version 1)
Quarter: 2024Q3

REPORT INFORMATION
  Report Type: Spontaneous
  Country: US (occurrence: US)
  Receive Date: 20240823
  Receipt Date: 20240823
  Transmission Date: 20241017
  Serious: Yes (Other)
  Sender: MYLAN
  Company Number: US-MYLANLABS-2024M1076846

PATIENT
  Age: 45 Year
  Sex: Female

DRUGS (3)
  1. TRIAMCINOLONE [Suspect]
     Active Substance: TRIAMCINOLONE
     Indication: Alagille syndrome
     Dosage: UNK UNK, BID
     Route: 065
  2. DUPILUMAB [Suspect]
     Active Substance: DUPILUMAB
     Indication: Alagille syndrome
     Dosage: 600 MILLIGRAM (ONCE)
     Route: 065
  3. DUPILUMAB [Suspect]
     Active Substance: DUPILUMAB
     Dosage: 300 MILLIGRAM (EVERY OTHER WEEK)
     Route: 065

REACTIONS (2)
  - Therapy non-responder [Unknown]
  - Lichenoid keratosis [Unknown]
